FAERS Safety Report 8919947 (Version 1)
Quarter: 2012Q4

REPORT INFORMATION
  Report Type: 
  Country: US (occurrence: US)
  Receive Date: 20121121
  Receipt Date: 20121121
  Transmission Date: 20130627
  Serious: Yes (Hospitalization)
  Sender: FDA-Public Use
  Company Number: US-ACTELION-A-US2012-66490

PATIENT
  Age: 69 Year
  Sex: Female

DRUGS (4)
  1. VELETRI [Suspect]
     Indication: PULMONARY ARTERIAL HYPERTENSION
     Dosage: 37 ng/kg, per min
     Route: 042
     Dates: start: 20120515
  2. VELETRI [Suspect]
     Dosage: 34 ng/kg, per min
     Route: 042
     Dates: start: 20120420
  3. SILDENAFIL [Concomitant]
  4. COUMADIN [Concomitant]
     Dosage: UNK UNK, per min

REACTIONS (2)
  - Blood iron decreased [Unknown]
  - Device damage [Unknown]
